FAERS Safety Report 7594586-6 (Version None)
Quarter: 2011Q3

REPORT INFORMATION
  Report Type: 
  Country: None (occurrence: None)
  Receive Date: 20110707
  Receipt Date: 20110628
  Transmission Date: 20111222
  Serious: Yes (Other)
  Sender: FDA-Public Use
  Company Number: US-CELGENEUS-163-C5013-11063805

PATIENT
  Sex: Male
  Weight: 98.2 kg

DRUGS (15)
  1. LENALIDOMIDE [Suspect]
     Indication: MULTIPLE MYELOMA
     Dosage: 25 MILLIGRAM
     Route: 048
     Dates: start: 20090605
  2. DEXAMETHASONE [Suspect]
     Indication: MULTIPLE MYELOMA
     Dosage: 40 MILLIGRAM
     Route: 065
     Dates: start: 20090605
  3. ACYCLOVIR [Concomitant]
     Dosage: 400 MILLIGRAM
     Route: 048
  4. LENALIDOMIDE [Suspect]
     Dosage: 25 MILLIGRAM
     Route: 048
     Dates: start: 20110624
  5. SIMVASTATIN [Concomitant]
     Dosage: 20 MILLIGRAM
     Route: 048
  6. TARTRATE [Concomitant]
     Dosage: 50 MILLIGRAM
     Route: 048
  7. ALPHA LIPOIC ACID [Concomitant]
     Dosage: 100 MILLIGRAM
     Route: 048
  8. DEXAMETHASONE [Suspect]
     Route: 065
     Dates: start: 20110624
  9. DAPSONE [Concomitant]
     Dosage: 100 MILLIGRAM
     Route: 048
  10. STOOL SOFTENER [Concomitant]
     Route: 048
  11. COUMADIN [Concomitant]
     Dosage: 5 MILLIGRAM
     Route: 048
     Dates: start: 20090703
  12. L-ARGININE [Concomitant]
     Dosage: 500 MILLIGRAM
     Route: 048
  13. PROMETHAZINE [Concomitant]
     Indication: COUGH
     Dosage: 25 MILLIGRAM
     Route: 048
  14. VITAMIN B6 [Concomitant]
     Dosage: 50 MILLIGRAM
     Route: 048
  15. AMLODIPINE [Concomitant]
     Dosage: 5 MILLIGRAM
     Route: 048

REACTIONS (1)
  - PROSTATE CANCER [None]
